FAERS Safety Report 19499608 (Version 1)
Quarter: 2021Q3

REPORT INFORMATION
  Report Type: Report from Study
  Country: None (occurrence: US)
  Receive Date: 20210707
  Receipt Date: 20210707
  Transmission Date: 20211014
  Serious: Yes (Hospitalization)
  Sender: FDA-Public Use
  Company Number: US-ABBVIE-21K-163-3966918-00

PATIENT
  Age: 83 Year
  Sex: Male
  Weight: 75.82 kg

DRUGS (2)
  1. IRON [Concomitant]
     Active Substance: IRON
     Indication: PRODUCT USED FOR UNKNOWN INDICATION
  2. HUMIRA [Suspect]
     Active Substance: ADALIMUMAB
     Indication: CROHN^S DISEASE
     Dosage: CITRATE FREE
     Route: 058

REACTIONS (11)
  - Weight decreased [Not Recovered/Not Resolved]
  - Feeding disorder [Unknown]
  - Small intestinal obstruction [Not Recovered/Not Resolved]
  - Abdominal rigidity [Unknown]
  - Haemorrhage [Unknown]
  - Post procedural complication [Unknown]
  - Intestinal perforation [Recovering/Resolving]
  - Blood count abnormal [Unknown]
  - Vomiting [Recovered/Resolved]
  - Fluid intake reduced [Unknown]
  - Illness [Unknown]

NARRATIVE: CASE EVENT DATE: 2019
